APPROVED DRUG PRODUCT: DEXAMETHASONE SODIUM PHOSPHATE
Active Ingredient: DEXAMETHASONE SODIUM PHOSPHATE
Strength: EQ 20MG PHOSPHATE/ML
Dosage Form/Route: INJECTABLE;INJECTION
Application: A088522 | Product #001
Applicant: INTERNATIONAL MEDICATION SYSTEMS LTD
Approved: Feb 17, 1984 | RLD: No | RS: No | Type: DISCN